FAERS Safety Report 25612863 (Version 1)
Quarter: 2025Q3

REPORT INFORMATION
  Report Type: Spontaneous
  Country: CO (occurrence: CO)
  Receive Date: 20250728
  Receipt Date: 20250728
  Transmission Date: 20251020
  Serious: Yes (Hospitalization)
  Sender: ALEXION PHARMACEUTICALS
  Company Number: CO-ASTRAZENECA-202507SAM022352CO

PATIENT
  Age: 5 Month
  Sex: Female

DRUGS (1)
  1. KANUMA [Suspect]
     Active Substance: SEBELIPASE ALFA
     Indication: Lysosomal acid lipase deficiency
     Route: 065

REACTIONS (5)
  - Gastric dilatation [Not Recovered/Not Resolved]
  - Pyrexia [Unknown]
  - Tachycardia [Unknown]
  - Pain [Unknown]
  - Discomfort [Unknown]
